FAERS Safety Report 5662795-9 (Version None)
Quarter: 2008Q1

REPORT INFORMATION
  Report Type: 
  Country: None (occurrence: None)
  Receive Date: 20080221
  Receipt Date: 20070723
  Transmission Date: 20080703
  Serious: Yes (Other)
  Sender: FDA-Public Use
  Company Number: PHEH2007US09513

PATIENT
  Sex: Female

DRUGS (3)
  1. DIOVAN [Suspect]
     Indication: CARDIAC FAILURE
     Dosage: 80MG, 1/2 TAB ; 320MG, QD ; 160 MG, BID
     Dates: start: 20070223, end: 20070223
  2. DIOVAN [Suspect]
     Indication: CARDIAC FAILURE
     Dosage: 80MG, 1/2 TAB ; 320MG, QD ; 160 MG, BID
     Dates: start: 20070622, end: 20070625
  3. DIOVAN [Suspect]
     Indication: CARDIAC FAILURE
     Dosage: 80MG, 1/2 TAB ; 320MG, QD ; 160 MG, BID
     Dates: start: 20070625, end: 20070628

REACTIONS (17)
  - BACK PAIN [None]
  - BRONCHITIS [None]
  - CHEST X-RAY ABNORMAL [None]
  - COUGH [None]
  - DYSPHAGIA [None]
  - DYSPNOEA [None]
  - HEART RATE INCREASED [None]
  - HYPERTENSION [None]
  - MALAISE [None]
  - MIGRAINE [None]
  - NAUSEA [None]
  - PHARYNGOLARYNGEAL PAIN [None]
  - PYREXIA [None]
  - RASH [None]
  - RHINORRHOEA [None]
  - SINUSITIS [None]
  - VOMITING [None]
